FAERS Safety Report 9807666 (Version 3)
Quarter: 2016Q3

REPORT INFORMATION
  Report Type: Report from Study
  Country: US (occurrence: US)
  Receive Date: 20140110
  Receipt Date: 20160815
  Transmission Date: 20161109
  Serious: Yes (Hospitalization)
  Sender: FDA-Public Use
  Company Number: US-ROCHE-782749

PATIENT
  Age: 60 Year
  Sex: Female
  Weight: 39.1 kg

DRUGS (3)
  1. VISMODEGIB [Suspect]
     Active Substance: VISMODEGIB
     Indication: SMALL CELL LUNG CANCER
     Dosage: 21 DAY CYCLE (150 X 21= 3150 MG PER CYCLE)?DATE OF MOST RECENT DOSE PRIOR TO SAES WAS ON 27 APR 2011
     Route: 048
     Dates: start: 20110330, end: 20110427
  2. ETOPOSIDE. [Suspect]
     Active Substance: ETOPOSIDE
     Indication: SMALL CELL LUNG CANCER
     Dosage: CYCLE = 21 DAYS?DATE OF MOST RECENT DOSE PRIOR TO SAES WAS ON 27 APR 2011 AT 133 MG
     Route: 042
     Dates: start: 20110330, end: 20110427
  3. CISPLATIN. [Suspect]
     Active Substance: CISPLATIN
     Indication: SMALL CELL LUNG CANCER
     Dosage: CYCLE = 21 DAYS?DATE OF MOST RECENT DOSE PRIOR TO SAES WAS ON 27 APR 2011 AT 100 MG
     Route: 042
     Dates: start: 20110330, end: 20110427

REACTIONS (4)
  - Hip fracture [Recovered/Resolved]
  - Dehydration [Recovered/Resolved]
  - Lung infection [Recovered/Resolved]
  - Decreased appetite [Recovered/Resolved]

NARRATIVE: CASE EVENT DATE: 20110428
